FAERS Safety Report 9459034 (Version 3)
Quarter: 2014Q1

REPORT INFORMATION
  Report Type: Spontaneous
  Country: US (occurrence: US)
  Receive Date: 20130814
  Receipt Date: 20140210
  Transmission Date: 20141002
  Serious: Yes (Death, Hospitalization)
  Sender: FDA-Public Use
  Company Number: US-B.I. PHARMACEUTICALS,INC./RIDGEFIELD-2013-BI-24804BP

PATIENT
  Sex: Female
  Weight: 42.64 kg

DRUGS (8)
  1. PRADAXA [Suspect]
     Indication: ATRIAL FIBRILLATION
     Dosage: 150 MG
     Dates: start: 201103, end: 201108
  2. PROTONIX [Concomitant]
     Dates: start: 200810, end: 201108
  3. AMIODARONE [Concomitant]
     Dosage: 200 MG
     Route: 048
  4. SYNTHROID [Concomitant]
     Dates: start: 201005, end: 201108
  5. PREDNISONE [Concomitant]
     Dosage: 7.5 MG
     Route: 048
  6. MYCOPHENOLATE [Concomitant]
     Dates: start: 2009, end: 2011
  7. METOPROLOL TARTRATE [Concomitant]
  8. AMITRIPTYLINE [Concomitant]
     Dates: start: 2010, end: 2011

REACTIONS (1)
  - Brain stem haemorrhage [Fatal]
